FAERS Safety Report 13469441 (Version 1)
Quarter: 2017Q2

REPORT INFORMATION
  Report Type: Spontaneous
  Country: US (occurrence: US)
  Receive Date: 20170421
  Receipt Date: 20170421
  Transmission Date: 20170830
  Serious: No
  Sender: FDA-Public Use
  Company Number: US-009507513-1703USA013213

PATIENT
  Age: 31 Year
  Sex: Female

DRUGS (9)
  1. TOPIRAMATE. [Concomitant]
     Active Substance: TOPIRAMATE
  2. CLONAZEPAM. [Concomitant]
     Active Substance: CLONAZEPAM
  3. DIETHYLPROPION HYDROCHLORIDE. [Concomitant]
     Active Substance: DIETHYLPROPION HYDROCHLORIDE
  4. SUBOXONE [Concomitant]
     Active Substance: BUPRENORPHINE HYDROCHLORIDE\NALOXONE HYDROCHLORIDE
  5. ZOFRAN [Concomitant]
     Active Substance: ONDANSETRON HYDROCHLORIDE
  6. ZEPATIER [Suspect]
     Active Substance: ELBASVIR\GRAZOPREVIR
     Indication: HEPATITIS C
     Dosage: 1 TABLET DAILY
     Route: 048
  7. LAMICTAL [Concomitant]
     Active Substance: LAMOTRIGINE
  8. SUMATRIPTAN. [Concomitant]
     Active Substance: SUMATRIPTAN
  9. ZOLPIDEM [Concomitant]
     Active Substance: ZOLPIDEM\ZOLPIDEM TARTRATE
     Dosage: UNK

REACTIONS (1)
  - Alopecia [Not Recovered/Not Resolved]
